FAERS Safety Report 5562701-1 (Version None)
Quarter: 2007Q4

REPORT INFORMATION
  Report Type: 
  Country: None (occurrence: None)
  Receive Date: 20071211
  Receipt Date: 20071211
  Transmission Date: 20080405
  Serious: Yes (Life-Threatening, Hospitalization, Other)
  Sender: FDA-Public Use
  Company Number: None

PATIENT
  Age: 50 Year
  Sex: Female
  Weight: 65.7716 kg

DRUGS (2)
  1. LEXAPRO [Suspect]
     Dosage: 1  DAILY
     Dates: start: 20031111, end: 20040101
  2. ZOLOFT [Suspect]
     Dosage: 1; THEN  4 THEN BACK TO 1   DAILY

REACTIONS (12)
  - ABDOMINAL PAIN [None]
  - ALCOHOLIC [None]
  - ANTINUCLEAR ANTIBODY POSITIVE [None]
  - DIARRHOEA [None]
  - HYPERTENSION [None]
  - INSOMNIA [None]
  - NERVE INJURY [None]
  - PALPITATIONS [None]
  - PANIC ATTACK [None]
  - SEROTONIN SYNDROME [None]
  - TREMOR [None]
  - VOMITING [None]
